FAERS Safety Report 20578654 (Version 1)
Quarter: 2022Q1

REPORT INFORMATION
  Report Type: Spontaneous
  Country: MY (occurrence: MY)
  Receive Date: 20220310
  Receipt Date: 20220310
  Transmission Date: 20220423
  Serious: Yes (Death, Other)
  Sender: FDA-Public Use
  Company Number: MY-PFIZER INC-202200342586

PATIENT
  Age: 12 Year
  Sex: Male

DRUGS (10)
  1. CYTARABINE [Suspect]
     Active Substance: CYTARABINE
     Indication: Acute lymphocytic leukaemia (in remission)
     Dosage: UNK
     Route: 037
  2. METHOTREXATE [Suspect]
     Active Substance: METHOTREXATE
     Indication: Acute lymphocytic leukaemia (in remission)
     Dosage: UNK
     Route: 037
  3. METHOTREXATE [Suspect]
     Active Substance: METHOTREXATE
     Dosage: UNK
  4. DEXAMETHASONE [Suspect]
     Active Substance: DEXAMETHASONE
     Indication: Acute lymphocytic leukaemia (in remission)
     Dosage: UNK
     Route: 037
  5. DEXAMETHASONE [Suspect]
     Active Substance: DEXAMETHASONE
     Dosage: UNK
     Route: 048
  6. VINCRISTINE [Concomitant]
     Active Substance: VINCRISTINE
     Indication: Acute lymphocytic leukaemia (in remission)
     Dosage: UNK
     Route: 042
  7. THIOGUANINE [Concomitant]
     Active Substance: THIOGUANINE
     Indication: Acute lymphocytic leukaemia (in remission)
     Dosage: UNK
     Route: 048
  8. IFOSFAMIDE [Concomitant]
     Active Substance: IFOSFAMIDE
     Indication: Acute lymphocytic leukaemia (in remission)
     Dosage: UNK
  9. DAUNORUBICIN [Concomitant]
     Active Substance: DAUNORUBICIN
     Indication: Acute lymphocytic leukaemia (in remission)
     Dosage: UNK
  10. ASPARAGINASE [Concomitant]
     Active Substance: ASPARAGINASE
     Indication: Acute lymphocytic leukaemia (in remission)
     Dosage: UNK
     Route: 030

REACTIONS (10)
  - Pneumonia [Fatal]
  - Myelopathy [Unknown]
  - Headache [Unknown]
  - Pain in extremity [Unknown]
  - Gait disturbance [Unknown]
  - Neurological symptom [Unknown]
  - Muscular weakness [Unknown]
  - Paraesthesia [Unknown]
  - Urinary incontinence [Unknown]
  - Anal incontinence [Unknown]
